FAERS Safety Report 19230205 (Version 1)
Quarter: 2021Q2

REPORT INFORMATION
  Report Type: Spontaneous
  Country: PT (occurrence: PT)
  Receive Date: 20210507
  Receipt Date: 20210507
  Transmission Date: 20210717
  Serious: Yes (Hospitalization)
  Sender: FDA-Public Use
  Company Number: PT-PFIZER INC-2021461436

PATIENT
  Age: 38 Year
  Sex: Male

DRUGS (5)
  1. RISPERDAL [Suspect]
     Active Substance: RISPERIDONE
     Indication: DISTURBANCE IN SOCIAL BEHAVIOUR
     Dosage: 4 MG, 1X/DAY
     Route: 065
  2. LORAZEPAM. [Suspect]
     Active Substance: LORAZEPAM
     Indication: DISTURBANCE IN SOCIAL BEHAVIOUR
     Dosage: 2.5 MG, 1X/DAY
     Route: 065
  3. VALPROIC ACID. [Suspect]
     Active Substance: VALPROIC ACID
     Indication: DISTURBANCE IN SOCIAL BEHAVIOUR
     Dosage: 4 MG, 1X/DAY
     Route: 065
  4. CLONAZEPAM. [Suspect]
     Active Substance: CLONAZEPAM
     Indication: DISTURBANCE IN SOCIAL BEHAVIOUR
     Dosage: 4 MG, 1X/DAY
     Route: 065
  5. CLONAZEPAM. [Suspect]
     Active Substance: CLONAZEPAM
     Dosage: 1 MG, 1X/DAY
     Route: 065

REACTIONS (1)
  - Polydipsia [Recovered/Resolved]
